FAERS Safety Report 4968631-8 (Version None)
Quarter: 2006Q2

REPORT INFORMATION
  Report Type: 
  Country: None (occurrence: None)
  Receive Date: 20060405
  Receipt Date: 20060322
  Transmission Date: 20061013
  Serious: Yes (Other)
  Sender: FDA-Public Use
  Company Number: 2006042344

PATIENT
  Age: 67 Year
  Sex: Female

DRUGS (2)
  1. XALATAN [Suspect]
     Indication: ILL-DEFINED DISORDER
     Dosage: 2 DROP (1 DROP, 2 IN 1 D), OPHTHALMIC
     Route: 047
     Dates: start: 20060201
  2. TIMOSAN (TIMOLOL MALEATE) [Concomitant]

REACTIONS (6)
  - CONDITION AGGRAVATED [None]
  - DEPRESSION [None]
  - EPISTAXIS [None]
  - MOUTH HAEMORRHAGE [None]
  - OEDEMA MOUTH [None]
  - SWOLLEN TONGUE [None]
